FAERS Safety Report 17499635 (Version 1)
Quarter: 2020Q1

REPORT INFORMATION
  Report Type: Spontaneous
  Country: US (occurrence: US)
  Receive Date: 20200304
  Receipt Date: 20200304
  Transmission Date: 20200409
  Serious: Yes (Other)
  Sender: FDA-Public Use
  Company Number: US-PTC THERAPEUTICS, INC.-US-2020PTC000044

PATIENT

DRUGS (1)
  1. EMFLAZA [Suspect]
     Active Substance: DEFLAZACORT
     Indication: PRODUCT USED FOR UNKNOWN INDICATION
     Dosage: UNK

REACTIONS (7)
  - Idiopathic intracranial hypertension [Unknown]
  - Intracranial pressure increased [Unknown]
  - Hypertension [Unknown]
  - Osteoporosis [Unknown]
  - Upper limb fracture [Unknown]
  - Cushingoid [Unknown]
  - Weight increased [Unknown]

NARRATIVE: CASE EVENT DATE: 2018
